FAERS Safety Report 8093417-8 (Version None)
Quarter: 2011Q4

REPORT INFORMATION
  Report Type: 
  Country: None (occurrence: None)
  Receive Date: 20111222
  Receipt Date: 20110824
  Transmission Date: 20120403
  Serious: Yes (Death, Hospitalization)
  Sender: FDA-Public Use
  Company Number: UTC-008946

PATIENT
  Age: 79 Year
  Sex: Male
  Weight: 47.27 kg

DRUGS (4)
  1. TYVASO [Suspect]
     Indication: PULMONARY ARTERIAL HYPERTENSION
     Dosage: 120 MCG  (30 MCG, 4 IN 1 D), INHALATION, 72 MCG  (18 MCG, 4 IN 1 D), INHALATION
     Route: 055
     Dates: start: 20110719
  2. TYVASO [Suspect]
     Indication: PULMONARY ARTERIAL HYPERTENSION
     Dosage: 120 MCG  (30 MCG, 4 IN 1 D), INHALATION, 72 MCG  (18 MCG, 4 IN 1 D), INHALATION
     Route: 055
     Dates: start: 20110628
  3. TRACLEER [Concomitant]
  4. OXYGEN (OXYGEN) [Concomitant]

REACTIONS (5)
  - DEATH [None]
  - ATRIAL FIBRILLATION [None]
  - CARDIAC FAILURE CONGESTIVE [None]
  - PULMONARY HYPERTENSION [None]
  - COUGH [None]
